FAERS Safety Report 5740467-X (Version None)
Quarter: 2008Q2

REPORT INFORMATION
  Report Type: 
  Country: None (occurrence: None)
  Receive Date: 20080516
  Receipt Date: 20080507
  Transmission Date: 20081010
  Serious: Yes (Hospitalization)
  Sender: FDA-Public Use
  Company Number: TW-ASTRAZENECA-2008AP03591

PATIENT
  Age: 16205 Day
  Sex: Female
  Weight: 52.6 kg

DRUGS (16)
  1. SEROQUEL [Suspect]
     Indication: PSYCHOTIC DISORDER
     Route: 048
     Dates: start: 20051124, end: 20051124
  2. SEROQUEL [Suspect]
     Route: 048
     Dates: start: 20051125, end: 20051128
  3. SEROQUEL [Suspect]
     Route: 048
     Dates: start: 20051129
  4. DEPAKENE [Suspect]
     Indication: BIPOLAR I DISORDER
     Route: 048
     Dates: start: 20051128, end: 20051129
  5. LAMICTAL [Suspect]
     Indication: BIPOLAR I DISORDER
     Route: 048
     Dates: start: 20051114, end: 20051120
  6. LAMICTAL [Suspect]
     Route: 048
     Dates: start: 20051121, end: 20051127
  7. WELLBUTRIN SR [Suspect]
     Indication: DEPRESSION
     Route: 048
     Dates: start: 20051118, end: 20051121
  8. WELLBUTRIN SR [Suspect]
     Route: 048
     Dates: start: 20051122, end: 20051127
  9. ATIVAN [Concomitant]
     Indication: SEDATION
     Route: 048
     Dates: start: 20051125
  10. MODIPANOL [Concomitant]
     Indication: INSOMNIA
     Route: 048
     Dates: start: 20051127, end: 20051129
  11. RIVOTRIL [Concomitant]
     Indication: INSOMNIA
     Route: 048
     Dates: start: 20051125, end: 20051128
  12. SEMI-NAX [Concomitant]
     Indication: INSOMNIA
     Route: 048
     Dates: start: 20051110
  13. SENOKOT [Concomitant]
     Indication: CONSTIPATION
     Route: 048
     Dates: start: 20051111
  14. VENLAFAXINE SR [Concomitant]
     Route: 048
     Dates: end: 20051110
  15. VENLAFAXINE SR [Concomitant]
     Route: 048
     Dates: start: 20051111, end: 20051115
  16. VENLAFAXINE SR [Concomitant]
     Route: 048
     Dates: start: 20051116, end: 20051117

REACTIONS (4)
  - ANGIOEDEMA [None]
  - ERYTHEMA [None]
  - LEUKOPENIA [None]
  - RASH [None]
